FAERS Safety Report 6162658-9 (Version None)
Quarter: 2009Q2

REPORT INFORMATION
  Report Type: 
  Country: None (occurrence: None)
  Receive Date: 20090421
  Receipt Date: 20081003
  Transmission Date: 20091009
  Serious: No
  Sender: FDA-Public Use
  Company Number: US-ASTRAZENECA-2008UW21611

PATIENT
  Age: 78 Year
  Sex: Male
  Weight: 88.5 kg

DRUGS (1)
  1. CASODEX [Suspect]
     Indication: PROSTATE CANCER
     Route: 048
     Dates: start: 20020101

REACTIONS (1)
  - HYPOTRICHOSIS [None]
